FAERS Safety Report 26096363 (Version 1)
Quarter: 2025Q4

REPORT INFORMATION
  Report Type: Spontaneous
  Country: EU (occurrence: None)
  Receive Date: 20251127
  Receipt Date: 20251127
  Transmission Date: 20260119
  Serious: Yes (Hospitalization)
  Sender: ORGANON
  Company Number: EU-ORGANON-O2511FRA001664

PATIENT
  Age: 35 Year
  Sex: Female

DRUGS (5)
  1. NASONEX [Suspect]
     Active Substance: MOMETASONE FUROATE
     Indication: Asthma
     Dosage: 1 DOSAGE FORM, QD (SUSPENSION FOR NASAL SPRAY)
     Dates: start: 20240113, end: 20241008
  2. XOLAIR [Suspect]
     Active Substance: OMALIZUMAB
     Indication: Asthma
     Dosage: 450 MILLIGRAM, QM
     Dates: start: 20240113, end: 20241008
  3. INNOVAIR [Suspect]
     Active Substance: BECLOMETHASONE DIPROPIONATE\FORMOTEROL
     Indication: Asthma
     Dosage: 400 MICROGRAM, Q12H
     Dates: start: 20240113, end: 20241008
  4. BILASTINE [Suspect]
     Active Substance: BILASTINE
     Indication: Asthma
     Dosage: 1 DOSAGE FORM, PRN
     Dates: start: 20240113, end: 20241008
  5. SPIRIVA RESPIMAT [Suspect]
     Active Substance: TIOTROPIUM BROMIDE
     Indication: Asthma
     Dosage: 2 DOSAGE FORM, QD (INHALATION SOLUTION)
     Dates: start: 20240113, end: 20241008

REACTIONS (2)
  - Maternal exposure during pregnancy [Recovered/Resolved]
  - Product use in unapproved indication [Unknown]

NARRATIVE: CASE EVENT DATE: 20240113
